FAERS Safety Report 14682116 (Version 9)
Quarter: 2018Q4

REPORT INFORMATION
  Report Type: Report from Study
  Country: US (occurrence: US)
  Receive Date: 20180326
  Receipt Date: 20181114
  Transmission Date: 20190204
  Serious: Yes (Death, Life-Threatening, Hospitalization, Other)
  Sender: FDA-Public Use
  Company Number: US-BRISTOL-MYERS SQUIBB COMPANY-BMS-2018-026633

PATIENT
  Age: 48 Year
  Sex: Female
  Weight: 61.4 kg

DRUGS (10)
  1. NIVOLUMAB [Suspect]
     Active Substance: NIVOLUMAB
     Indication: COLORECTAL CANCER
     Dosage: 3 MG/KG, UNK
     Route: 042
     Dates: start: 20180222
  2. SODIUM CHLORIDE. [Concomitant]
     Active Substance: SODIUM CHLORIDE
     Indication: PRODUCT USED FOR UNKNOWN INDICATION
     Route: 042
  3. SENNA                              /00142201/ [Concomitant]
     Active Substance: SENNA LEAF
     Indication: PRODUCT USED FOR UNKNOWN INDICATION
     Dosage: 8.6 MG, UNK
     Route: 048
  4. COBIMETINIB. [Suspect]
     Active Substance: COBIMETINIB
     Indication: COLORECTAL CANCER
     Dosage: 60 MG, QD
     Route: 048
     Dates: start: 20180222
  5. VITAMIN D3 [Concomitant]
     Active Substance: CHOLECALCIFEROL
     Indication: PRODUCT USED FOR UNKNOWN INDICATION
     Dosage: UNK
     Route: 065
     Dates: start: 2017
  6. DOXYCYCLINE. [Concomitant]
     Active Substance: DOXYCYCLINE
     Indication: PRODUCT USED FOR UNKNOWN INDICATION
     Dosage: UNK
     Route: 065
     Dates: start: 20180222, end: 20180304
  7. IPILIMUMAB [Suspect]
     Active Substance: IPILIMUMAB
     Indication: COLORECTAL CANCER
     Dosage: 1 MG/KG, UNK
     Route: 042
     Dates: start: 20180222
  8. ZOFRAN [Concomitant]
     Active Substance: ONDANSETRON HYDROCHLORIDE
     Indication: PRODUCT USED FOR UNKNOWN INDICATION
     Dosage: 8 MG, UNK
     Route: 048
  9. CLINDAMYCIN. [Concomitant]
     Active Substance: CLINDAMYCIN
     Indication: PRODUCT USED FOR UNKNOWN INDICATION
     Dosage: UNK
     Route: 061
     Dates: start: 20180222
  10. COMPAZINE                          /00013302/ [Concomitant]
     Active Substance: PROCHLORPERAZINE EDISYLATE
     Indication: PRODUCT USED FOR UNKNOWN INDICATION
     Dosage: 10 MG, UNK
     Route: 048

REACTIONS (8)
  - Septic shock [Fatal]
  - Acute respiratory failure [Not Recovered/Not Resolved]
  - Post procedural complication [Fatal]
  - Intestinal perforation [Not Recovered/Not Resolved]
  - Pancreatitis [Not Recovered/Not Resolved]
  - Metabolic acidosis [Not Recovered/Not Resolved]
  - Colitis [Fatal]
  - Renal tubular necrosis [Not Recovered/Not Resolved]

NARRATIVE: CASE EVENT DATE: 20180311
